FAERS Safety Report 4285594-1 (Version None)
Quarter: 2004Q1

REPORT INFORMATION
  Report Type: 
  Country: None (occurrence: None)
  Receive Date: 20040203
  Receipt Date: 20040122
  Transmission Date: 20041129
  Serious: Yes (Other)
  Sender: FDA-Public Use
  Company Number: STA-AE-03-MTX-133

PATIENT
  Age: 72 Year
  Sex: Female

DRUGS (1)
  1. RHEUMATREX [Suspect]
     Indication: RHEUMATOID ARTHRITIS
     Dosage: 4 MG, ORAL
     Dates: end: 20031115

REACTIONS (4)
  - BONE MARROW DEPRESSION [None]
  - GASTRITIS EROSIVE [None]
  - INTERSTITIAL LUNG DISEASE [None]
  - RENAL IMPAIRMENT [None]
